FAERS Safety Report 6120062-3 (Version None)
Quarter: 2009Q1

REPORT INFORMATION
  Report Type: 
  Country: None (occurrence: None)
  Receive Date: 20090316
  Receipt Date: 20090306
  Transmission Date: 20090719
  Serious: Yes (Hospitalization, Other)
  Sender: FDA-Public Use
  Company Number: US-AMGEN-QUU337367

PATIENT
  Sex: Female

DRUGS (1)
  1. ENBREL [Suspect]
     Indication: PSORIASIS
     Route: 058
     Dates: start: 20031001

REACTIONS (5)
  - GENITAL INFECTION [None]
  - GENITAL NEOPLASM MALIGNANT FEMALE [None]
  - INFECTION [None]
  - NAIL OPERATION [None]
  - PSORIASIS [None]
